FAERS Safety Report 7486548-4 (Version None)
Quarter: 2011Q2

REPORT INFORMATION
  Report Type: 
  Country: None (occurrence: None)
  Receive Date: 20110516
  Receipt Date: 20110516
  Transmission Date: 20111010
  Serious: No
  Sender: FDA-Public Use
  Company Number: None

PATIENT
  Age: 83 Year
  Sex: Female
  Weight: 80.2867 kg

DRUGS (1)
  1. DILAUDID [Suspect]
     Indication: ABDOMINAL PAIN
     Dosage: 1MGM IV Q2PRN
     Route: 042
     Dates: start: 20110430

REACTIONS (2)
  - PRURITUS [None]
  - RASH MACULO-PAPULAR [None]
